FAERS Safety Report 6733114-1 (Version None)
Quarter: 2010Q2

REPORT INFORMATION
  Report Type: 
  Country: None (occurrence: None)
  Receive Date: 20100518
  Receipt Date: 20100511
  Transmission Date: 20101027
  Serious: Yes (Death)
  Sender: FDA-Public Use
  Company Number: 2010SP022043

PATIENT
  Age: 60 Year
  Sex: Male

DRUGS (2)
  1. PROVENTIL-HFA [Suspect]
     Indication: DYSPNOEA
     Dosage: ; PO
     Route: 048
  2. POTASSIUM CHLORIDE [Suspect]
     Indication: ELECTROLYTE SUBSTITUTION THERAPY
     Dosage: ; PO
     Route: 048

REACTIONS (2)
  - CARDIAC ARREST [None]
  - ELECTROMECHANICAL DISSOCIATION [None]
